FAERS Safety Report 14794312 (Version 1)
Quarter: 2018Q2

REPORT INFORMATION
  Report Type: Spontaneous
  Country: US (occurrence: US)
  Receive Date: 20180423
  Receipt Date: 20180423
  Transmission Date: 20180711
  Serious: Yes (Life-Threatening, Other)
  Sender: FDA-Public Use
  Company Number: US-PFIZER INC-2018160398

PATIENT
  Age: 13 Year
  Sex: Female

DRUGS (4)
  1. IBUPROFEN. [Suspect]
     Active Substance: IBUPROFEN
     Dosage: UNK
     Dates: start: 20180125
  2. FLEXERIL [Suspect]
     Active Substance: CYCLOBENZAPRINE HYDROCHLORIDE
     Dosage: UNK
     Dates: start: 20180125
  3. OSELTAMIVIR PHOSPHATE. [Suspect]
     Active Substance: OSELTAMIVIR PHOSPHATE
     Dosage: 75 MG, 2X/DAY
     Dates: start: 20180117, end: 20180122
  4. VALIUM [Suspect]
     Active Substance: DIAZEPAM
     Dosage: 70 MG, UNK
     Dates: start: 20180125

REACTIONS (8)
  - Intentional overdose [Unknown]
  - Chest pain [Recovered/Resolved]
  - Suicidal ideation [Unknown]
  - Abdominal discomfort [Unknown]
  - Eating disorder [Unknown]
  - Suicide attempt [Unknown]
  - Abdominal pain upper [Not Recovered/Not Resolved]
  - Depression [Unknown]

NARRATIVE: CASE EVENT DATE: 20180125
